FAERS Safety Report 9648904 (Version 2)
Quarter: 2014Q1

REPORT INFORMATION
  Report Type: Spontaneous
  Country: US (occurrence: None)
  Receive Date: 20131018
  Receipt Date: 20140122
  Transmission Date: 20141002
  Serious: No
  Sender: FDA-Public Use
  Company Number: AEGR000074

PATIENT
  Age: 79 Year
  Sex: Female
  Weight: 57.1 kg

DRUGS (2)
  1. JUXTAPID [Suspect]
     Indication: TYPE IIA HYPERLIPIDAEMIA
     Route: 048
     Dates: start: 20130701
  2. NIACIN ( NIACIN) [Concomitant]

REACTIONS (1)
  - Weight decreased [None]
